FAERS Safety Report 6573162-8 (Version None)
Quarter: 2010Q1

REPORT INFORMATION
  Report Type: 
  Country: None (occurrence: None)
  Receive Date: 20100208
  Receipt Date: 20100202
  Transmission Date: 20100710
  Serious: Yes (Hospitalization)
  Sender: FDA-Public Use
  Company Number: US-BAYER-201014401GPV

PATIENT
  Age: 76 Year
  Sex: Male

DRUGS (10)
  1. SORAFENIB [Suspect]
     Indication: HEPATIC NEOPLASM MALIGNANT
     Dosage: TOTAL DAILY DOSE: 800 MG
     Route: 048
     Dates: start: 20091120, end: 20091130
  2. AMG386 [Suspect]
     Indication: HEPATIC NEOPLASM MALIGNANT
     Route: 042
     Dates: start: 20091120, end: 20091127
  3. LACTULOSE [Concomitant]
     Route: 048
     Dates: start: 20091109, end: 20091216
  4. NEXIUM [Concomitant]
     Route: 048
     Dates: start: 20091106, end: 20091216
  5. NYSTATIN [Concomitant]
     Dosage: TOTAL DAILY DOSE: 20 ML
     Route: 048
     Dates: start: 20091109, end: 20091216
  6. RANITIDINE [Concomitant]
     Route: 048
     Dates: start: 20091117, end: 20091130
  7. MEGACE [Concomitant]
     Route: 048
     Dates: start: 20091109, end: 20091130
  8. OXYCODONE HCL [Concomitant]
     Route: 048
  9. OXYCONTIN [Concomitant]
     Route: 048
  10. REGLAN [Concomitant]
     Route: 048

REACTIONS (5)
  - ASPARTATE AMINOTRANSFERASE INCREASED [None]
  - ATRIAL FIBRILLATION [None]
  - DEHYDRATION [None]
  - HYPERBILIRUBINAEMIA [None]
  - RENAL FAILURE ACUTE [None]
